FAERS Safety Report 12487455 (Version 2)
Quarter: 2016Q3

REPORT INFORMATION
  Report Type: Spontaneous
  Country: PT (occurrence: PT)
  Receive Date: 20160622
  Receipt Date: 20160716
  Transmission Date: 20161109
  Serious: Yes (Life-Threatening, Hospitalization, Other)
  Sender: FDA-Public Use
  Company Number: PT-AUROBINDO-AUR-APL-2016-08198

PATIENT
  Age: 41 Year
  Sex: Male

DRUGS (1)
  1. OLANZAPINE 2.5MG [Suspect]
     Active Substance: OLANZAPINE
     Indication: PRODUCT USED FOR UNKNOWN INDICATION
     Dosage: 2.5 MG, UNK
     Route: 065

REACTIONS (12)
  - Haemodynamic instability [Recovered/Resolved]
  - Negativism [Recovered/Resolved]
  - Catatonia [Recovered/Resolved]
  - Immobile [Recovered/Resolved]
  - Rhabdomyolysis [Recovered/Resolved]
  - Mutism [Recovered/Resolved]
  - Leukocytosis [Recovered/Resolved]
  - Disorganised speech [Recovered/Resolved]
  - Pyrexia [Recovered/Resolved]
  - Condition aggravated [Recovered/Resolved]
  - Neuroleptic malignant syndrome [Recovered/Resolved]
  - Muscle rigidity [Recovered/Resolved]
